FAERS Safety Report 7008384-5 (Version None)
Quarter: 2010Q3

REPORT INFORMATION
  Report Type: 
  Country: None (occurrence: None)
  Receive Date: 20100922
  Receipt Date: 20100914
  Transmission Date: 20110219
  Serious: Yes (Hospitalization)
  Sender: FDA-Public Use
  Company Number: B0518635A

PATIENT
  Sex: Male

DRUGS (2)
  1. CLAMOXYL [Suspect]
     Indication: DENTAL DISORDER PROPHYLAXIS
     Dosage: 2G PER DAY
     Route: 048
     Dates: start: 20080221, end: 20080223
  2. EFFERALGAN CODEINE [Concomitant]
     Indication: PRODUCT USED FOR UNKNOWN INDICATION
     Dosage: 4TAB PER DAY
     Route: 048
     Dates: start: 20080221, end: 20080223

REACTIONS (8)
  - HEADACHE [None]
  - HYPERPROTEINAEMIA [None]
  - MENINGITIS [None]
  - MENINGITIS ASEPTIC [None]
  - NAUSEA [None]
  - NUCHAL RIGIDITY [None]
  - PYREXIA [None]
  - VOMITING [None]
